FAERS Safety Report 7508188-0 (Version None)
Quarter: 2011Q2

REPORT INFORMATION
  Report Type: 
  Country: None (occurrence: None)
  Receive Date: 20110527
  Receipt Date: 20110524
  Transmission Date: 20111010
  Serious: Yes (Hospitalization)
  Sender: FDA-Public Use
  Company Number: GB-PFIZER INC-2011112354

PATIENT
  Age: 71 Year
  Sex: Female

DRUGS (4)
  1. AMOXICILLIN [Suspect]
     Indication: LOWER RESPIRATORY TRACT INFECTION
     Dosage: UNK
     Route: 048
     Dates: start: 20090704, end: 20090706
  2. DOXYCYCLINE HYCLATE [Suspect]
     Indication: LOWER RESPIRATORY TRACT INFECTION
     Dosage: UNK
     Dates: start: 20090706, end: 20090712
  3. TAMIFLU [Suspect]
     Indication: H1N1 INFLUENZA
     Dosage: UNK
     Route: 048
     Dates: start: 20090704, end: 20090708
  4. FUROSEMIDE [Suspect]
     Dosage: UNK
     Route: 048
     Dates: start: 20090704

REACTIONS (1)
  - ATRIAL FIBRILLATION [None]
